FAERS Safety Report 8521354-0 (Version None)
Quarter: 2012Q3

REPORT INFORMATION
  Report Type: 
  Country: None (occurrence: None)
  Receive Date: 20120719
  Receipt Date: 20120424
  Transmission Date: 20120928
  Serious: Yes (Hospitalization)
  Sender: FDA-Public Use
  Company Number: DE-SANOFI-AVENTIS-2010SA056569

PATIENT
  Age: 75 Year
  Sex: Female
  Weight: 59 kg

DRUGS (7)
  1. CONCOR [Concomitant]
     Route: 048
     Dates: start: 20080101
  2. PLAVIX [Concomitant]
     Route: 048
     Dates: start: 20080101
  3. PRAVASTATIN [Concomitant]
     Route: 048
     Dates: start: 20080101
  4. DOCETAXEL [Suspect]
     Indication: BREAST CANCER
     Route: 041
     Dates: start: 20100917, end: 20100917
  5. GRANISETRON HYDROCHLORIDE [Concomitant]
     Indication: PROPHYLAXIS
     Route: 042
     Dates: start: 20100917, end: 20100917
  6. DEXAMETHASONE [Concomitant]
     Indication: PROPHYLAXIS
     Route: 042
     Dates: start: 20100917, end: 20100917
  7. DEXAMETHASONE [Concomitant]
     Dosage: ON DAY 0, 1, 2.
     Route: 048
     Dates: start: 20100916, end: 20100918

REACTIONS (4)
  - EPILEPSY [None]
  - SYNCOPE [None]
  - SKULL FRACTURE [None]
  - FALL [None]
